FAERS Safety Report 10608704 (Version 2)
Quarter: 2015Q2

REPORT INFORMATION
  Report Type: Spontaneous
  Country: IT (occurrence: IT)
  Receive Date: 20141125
  Receipt Date: 20150416
  Transmission Date: 20150821
  Serious: Yes (Hospitalization)
  Sender: FDA-Public Use
  Company Number: IT-PFIZER INC-2014320812

PATIENT
  Age: 20 Year
  Sex: Female

DRUGS (4)
  1. XANAX [Suspect]
     Active Substance: ALPRAZOLAM
     Dosage: UNK
     Route: 048
     Dates: start: 20141024, end: 20141024
  2. PRAZENE [Suspect]
     Active Substance: PRAZEPAM
     Dosage: UNK
     Route: 048
     Dates: start: 20141024, end: 20141024
  3. HALCION [Suspect]
     Active Substance: TRIAZOLAM
     Dosage: UNK
     Route: 048
     Dates: start: 20141024, end: 20141024
  4. TOPAMAX [Suspect]
     Active Substance: TOPIRAMATE
     Dosage: UNK
     Route: 048
     Dates: start: 20141024, end: 20141024

REACTIONS (3)
  - Drug abuse [Recovered/Resolved]
  - Intentional self-injury [Recovered/Resolved]
  - Sopor [Recovered/Resolved]

NARRATIVE: CASE EVENT DATE: 20141024
